FAERS Safety Report 6988722-X (Version None)
Quarter: 2010Q3

REPORT INFORMATION
  Report Type: 
  Country: None (occurrence: None)
  Receive Date: 20100830
  Receipt Date: 20100521
  Transmission Date: 20110219
  Serious: No
  Sender: FDA-Public Use
  Company Number: 2010063612

PATIENT
  Age: 60 Year
  Sex: Female
  Weight: 53.1 kg

DRUGS (7)
  1. TOVIAZ [Suspect]
     Indication: HYPERTONIC BLADDER
     Dosage: 4 MG, 1X/DAY, ORAL ; 2 MG, 1X/DAY, ORAL
     Route: 048
     Dates: start: 20100201, end: 20100501
  2. TOVIAZ [Suspect]
     Indication: POLLAKIURIA
     Dosage: 4 MG, 1X/DAY, ORAL ; 2 MG, 1X/DAY, ORAL
     Route: 048
     Dates: start: 20100201, end: 20100501
  3. TOVIAZ [Suspect]
     Indication: HYPERTONIC BLADDER
     Dosage: 4 MG, 1X/DAY, ORAL ; 2 MG, 1X/DAY, ORAL
     Route: 048
     Dates: start: 20100501
  4. TOVIAZ [Suspect]
     Indication: POLLAKIURIA
     Dosage: 4 MG, 1X/DAY, ORAL ; 2 MG, 1X/DAY, ORAL
     Route: 048
     Dates: start: 20100501
  5. AMITRIPTYLINE HYDROCHLORIDE [Concomitant]
  6. PRAVASTATIN [Concomitant]
  7. ESTRADIOL [Concomitant]

REACTIONS (3)
  - ABDOMINAL DISTENSION [None]
  - ILL-DEFINED DISORDER [None]
  - PRURITUS [None]
